FAERS Safety Report 23397060 (Version 1)
Quarter: 2024Q1

REPORT INFORMATION
  Report Type: Spontaneous
  Country: US (occurrence: US)
  Receive Date: 20240112
  Receipt Date: 20240112
  Transmission Date: 20240410
  Serious: No
  Sender: FDA-Public Use
  Company Number: US-ABBVIE-5580808

PATIENT

DRUGS (2)
  1. UBRELVY [Suspect]
     Active Substance: UBROGEPANT
     Indication: Migraine
     Dosage: STRENGTH 50MG
     Route: 048
  2. ELETRIPTAN [Suspect]
     Active Substance: ELETRIPTAN
     Indication: Pain
     Route: 065

REACTIONS (2)
  - Therapeutic product effect decreased [Unknown]
  - Unevaluable event [Unknown]
